FAERS Safety Report 20194602 (Version 2)
Quarter: 2022Q1

REPORT INFORMATION
  Report Type: Spontaneous
  Country: CZ (occurrence: CZ)
  Receive Date: 20211216
  Receipt Date: 20220316
  Transmission Date: 20220423
  Serious: Yes (Hospitalization)
  Sender: FDA-Public Use
  Company Number: CZ-PFIZER INC-202101727337

PATIENT
  Sex: Male

DRUGS (6)
  1. MYLOTARG [Suspect]
     Active Substance: GEMTUZUMAB OZOGAMICIN
     Indication: Acute myeloid leukaemia
     Dosage: 5 MG, DAILY ON DAYS 1, 4 AND 7
     Dates: start: 20210315, end: 20210321
  2. CYTARABINE [Suspect]
     Active Substance: CYTARABINE
     Dosage: 336 MG, 1X/DAY, DAYS 1-7
     Dates: start: 20210315, end: 20210321
  3. DAUNORUBICIN [Suspect]
     Active Substance: DAUNORUBICIN
     Indication: Acute myeloid leukaemia
     Dosage: 112 MG, 1X/DAY
     Dates: start: 20210315, end: 20210317
  4. OMEPRAZOLE [Concomitant]
     Active Substance: OMEPRAZOLE
     Dosage: 20 MG, 1X/DAY, 1-0-0
  5. CHOLECALCIFEROL [Concomitant]
     Active Substance: CHOLECALCIFEROL
     Dosage: 16 DROP, WEEKLY
  6. ALLOPURINOL [Concomitant]
     Active Substance: ALLOPURINOL
     Dosage: 100 MG, 1X/DAY, 1-0-0

REACTIONS (22)
  - Febrile neutropenia [Unknown]
  - Thrombocytopenia [Unknown]
  - Fluid retention [Recovered/Resolved]
  - Pancreatic disorder [Unknown]
  - C-reactive protein increased [Recovering/Resolving]
  - Pyrexia [Unknown]
  - Venoocclusive disease [Recovering/Resolving]
  - Liver function test increased [Recovering/Resolving]
  - Blood bilirubin increased [Recovering/Resolving]
  - Faeces discoloured [Unknown]
  - Diarrhoea [Unknown]
  - Anaemia [Unknown]
  - Coagulopathy [Unknown]
  - Anuria [Recovered/Resolved]
  - Ascites [Recovering/Resolving]
  - Gastrointestinal wall thickening [Unknown]
  - Infection [Unknown]
  - Hypoproteinaemia [Unknown]
  - Neutropenic colitis [Unknown]
  - Mineral metabolism disorder [Unknown]
  - Gastrointestinal haemorrhage [Unknown]
  - Nausea [Recovered/Resolved]

NARRATIVE: CASE EVENT DATE: 20210101
